FAERS Safety Report 6862176-6 (Version None)
Quarter: 2010Q3

REPORT INFORMATION
  Report Type: 
  Country: None (occurrence: None)
  Receive Date: 20100721
  Receipt Date: 20100708
  Transmission Date: 20110219
  Serious: Yes (Hospitalization)
  Sender: FDA-Public Use
  Company Number: FR-TEVA-241288ISR

PATIENT
  Sex: Female

DRUGS (5)
  1. VINCRISTINE [Suspect]
     Indication: WALDENSTROM'S MACROGLOBULINAEMIA
     Route: 042
     Dates: start: 20100409, end: 20100616
  2. DOXORUBICIN HCL [Suspect]
     Indication: WALDENSTROM'S MACROGLOBULINAEMIA
     Route: 042
     Dates: start: 20100409, end: 20100616
  3. CYCLOPHOSPHAMIDE [Suspect]
     Indication: WALDENSTROM'S MACROGLOBULINAEMIA
     Route: 042
     Dates: start: 20100409, end: 20100616
  4. RITUXIMAB [Suspect]
     Indication: WALDENSTROM'S MACROGLOBULINAEMIA
     Route: 042
     Dates: start: 20100409, end: 20100616
  5. DEXAMETHASONE [Concomitant]

REACTIONS (2)
  - FEBRILE BONE MARROW APLASIA [None]
  - URTICARIA [None]
